FAERS Safety Report 5607045-4 (Version None)
Quarter: 2008Q1

REPORT INFORMATION
  Report Type: 
  Country: None (occurrence: None)
  Receive Date: 20080129
  Receipt Date: 20080122
  Transmission Date: 20080703
  Serious: Yes (Death)
  Sender: FDA-Public Use
  Company Number: IE-PFIZER INC-2008006565

PATIENT
  Age: 66 Year
  Sex: Male

DRUGS (6)
  1. SUTENT [Suspect]
     Indication: METASTATIC RENAL CELL CARCINOMA
     Route: 048
  2. AMLODIPINE [Concomitant]
  3. ASPIRIN [Concomitant]
  4. ELTROXIN [Concomitant]
  5. PANTOPRAZOLE [Concomitant]
  6. ATORVASTATIN [Concomitant]

REACTIONS (1)
  - THROMBOTIC STROKE [None]
